FAERS Safety Report 14611587 (Version 1)
Quarter: 2018Q1

REPORT INFORMATION
  Report Type: Spontaneous
  Country: US (occurrence: US)
  Receive Date: 20180308
  Receipt Date: 20180308
  Transmission Date: 20180509
  Serious: No
  Sender: FDA-Public Use
  Company Number: US-009507513-1802USA006759

PATIENT
  Age: 31 Year

DRUGS (2)
  1. SIROLIMUS. [Concomitant]
     Active Substance: SIROLIMUS
     Indication: HODGKIN^S DISEASE
  2. ZOLINZA [Suspect]
     Active Substance: VORINOSTAT
     Indication: HODGKIN^S DISEASE
     Route: 048

REACTIONS (1)
  - Product use in unapproved indication [Unknown]
